FAERS Safety Report 6725931-9 (Version None)
Quarter: 2010Q2

REPORT INFORMATION
  Report Type: 
  Country: None (occurrence: None)
  Receive Date: 20100514
  Receipt Date: 20100506
  Transmission Date: 20101027
  Serious: Yes (Other)
  Sender: FDA-Public Use
  Company Number: AT-JNJFOC-20100501916

PATIENT
  Age: 48 Year
  Sex: Female

DRUGS (45)
  1. RISPERDAL [Suspect]
     Indication: DRUG USE FOR UNKNOWN INDICATION
     Route: 065
  2. RISPERDAL [Suspect]
     Route: 065
  3. TOLVON [Suspect]
     Indication: DRUG USE FOR UNKNOWN INDICATION
     Dosage: 0-0-0-2
     Route: 065
  4. NEURONTIN [Suspect]
     Indication: DRUG USE FOR UNKNOWN INDICATION
     Route: 065
  5. NEURONTIN [Suspect]
     Route: 065
  6. SEROQUEL [Suspect]
     Indication: DRUG USE FOR UNKNOWN INDICATION
     Route: 065
  7. SEROQUEL [Suspect]
     Route: 065
  8. SEROQUEL [Suspect]
     Dosage: 25-100 MG
     Route: 065
  9. SEROQUEL [Suspect]
     Route: 065
  10. SEROQUEL [Suspect]
     Route: 065
  11. SEROQUEL [Suspect]
     Route: 065
  12. SEROQUEL [Suspect]
     Route: 065
  13. SEROQUEL [Suspect]
     Route: 065
  14. DOMINAL [Suspect]
     Indication: DRUG USE FOR UNKNOWN INDICATION
     Route: 065
  15. DOMINAL [Suspect]
     Dosage: 0-0-0-1
     Route: 065
  16. ATARAX [Suspect]
     Indication: DRUG USE FOR UNKNOWN INDICATION
     Dosage: 1-1-0-1
     Route: 065
  17. DIABETEX [Suspect]
     Indication: DRUG USE FOR UNKNOWN INDICATION
     Dosage: 1-0-1-0
     Route: 065
  18. ASPIRIN [Suspect]
     Indication: DRUG USE FOR UNKNOWN INDICATION
     Dosage: 1-0-0-0
     Route: 065
  19. NEXIUM [Suspect]
     Indication: DRUG USE FOR UNKNOWN INDICATION
     Dosage: 0-0-0-1
     Route: 065
  20. FERROGRADUMET [Suspect]
     Indication: DRUG USE FOR UNKNOWN INDICATION
     Dosage: 1-0-0-0
     Route: 065
  21. NEURONTIN [Suspect]
     Route: 065
  22. NEURONTIN [Suspect]
     Dosage: 0-1-0-0
     Route: 065
  23. AKINETON [Suspect]
     Indication: DRUG USE FOR UNKNOWN INDICATION
     Route: 065
  24. AKINETON [Suspect]
     Route: 065
  25. CIPRALEX [Suspect]
     Indication: DRUG USE FOR UNKNOWN INDICATION
     Route: 065
  26. DEPAKENE [Suspect]
     Indication: DRUG USE FOR UNKNOWN INDICATION
     Route: 048
  27. DEPAKENE [Suspect]
     Route: 048
  28. NEXIUM [Suspect]
     Route: 065
  29. FERROGRADUMET [Suspect]
     Route: 065
  30. DEPAKENE [Concomitant]
     Route: 042
  31. DEPAKENE [Concomitant]
     Route: 042
  32. LORAZEPAM [Concomitant]
     Indication: DRUG USE FOR UNKNOWN INDICATION
     Dosage: 2.5 - 11.25 MG
     Route: 065
  33. LORAZEPAM [Concomitant]
     Route: 065
  34. LORAZEPAM [Concomitant]
     Route: 065
  35. LORAZEPAM [Concomitant]
     Route: 065
  36. LORAZEPAM [Concomitant]
     Route: 065
  37. LORAZEPAM [Concomitant]
     Route: 065
  38. TENORETIC 100 [Concomitant]
     Indication: DRUG USE FOR UNKNOWN INDICATION
     Route: 065
  39. MIRTABENE [Concomitant]
     Indication: DRUG USE FOR UNKNOWN INDICATION
     Route: 065
  40. MIRTABENE [Concomitant]
     Route: 065
  41. DIBENZYRAN [Concomitant]
     Route: 065
  42. SERACTIL [Concomitant]
     Route: 065
  43. SERACTIL [Concomitant]
     Route: 065
  44. AUGMENTIN '125' [Concomitant]
     Route: 065
  45. AUGMENTIN '125' [Concomitant]
     Route: 065

REACTIONS (3)
  - HEADACHE [None]
  - HYPONATRAEMIA [None]
  - NAUSEA [None]
